FAERS Safety Report 4728762-4 (Version None)
Quarter: 2005Q3

REPORT INFORMATION
  Report Type: 
  Country: None (occurrence: None)
  Receive Date: 20050729
  Receipt Date: 20050718
  Transmission Date: 20060218
  Serious: Yes (Hospitalization)
  Sender: FDA-Public Use
  Company Number: FR-GLAXOSMITHKLINE-B0388315A

PATIENT
  Age: 78 Year
  Sex: Female
  Weight: 72 kg

DRUGS (4)
  1. DEROXAT [Suspect]
     Indication: DYSTHYMIC DISORDER
     Dosage: 20MG PER DAY
     Route: 048
     Dates: start: 20050610, end: 20050614
  2. MOPRAL 20 MG [Suspect]
     Dosage: 20MG PER DAY
     Route: 048
     Dates: end: 20050620
  3. ACUITEL [Suspect]
     Indication: HYPERTENSION
     Dosage: 5MG PER DAY
     Route: 048
     Dates: end: 20050620
  4. KARDEGIC [Concomitant]
     Indication: CEREBROVASCULAR ACCIDENT
     Dosage: 300MG PER DAY
     Route: 048

REACTIONS (3)
  - DRUG INTERACTION [None]
  - HEMIPLEGIA [None]
  - HYPONATRAEMIA [None]
